FAERS Safety Report 9941826 (Version 2)
Quarter: 2014Q1

REPORT INFORMATION
  Report Type: Report from Study
  Country: US (occurrence: US)
  Receive Date: 20140303
  Receipt Date: 20140303
  Transmission Date: 20141002
  Serious: No
  Sender: FDA-Public Use
  Company Number: US-ABBVIE-12P-163-0981002-00

PATIENT
  Sex: Female

DRUGS (10)
  1. HUMIRA [Suspect]
     Indication: RHEUMATOID ARTHRITIS
     Route: 058
     Dates: start: 2006, end: 201105
  2. HUMIRA [Suspect]
     Dates: start: 20120904
  3. NEXIUM [Suspect]
  4. LEVOTHYROXINE [Concomitant]
     Indication: THYROID DISORDER
     Dosage: 0.075 MG DAILY
  5. MISOPROSTOL [Concomitant]
     Indication: GASTROOESOPHAGEAL REFLUX DISEASE
     Dosage: 40 MG DAILY
  6. GABAPENTIN [Concomitant]
     Indication: FIBROMYALGIA
     Dosage: 300 MG DAILY
  7. TOPAMAX [Concomitant]
     Indication: MIGRAINE
  8. PAXIL [Concomitant]
     Indication: DEPRESSION
     Dosage: 20 MG DAILY
  9. ALLEGRA [Concomitant]
     Indication: SEASONAL ALLERGY
     Dosage: DAILY
  10. OMEPRAZOLE [Concomitant]
     Indication: GASTROOESOPHAGEAL REFLUX DISEASE
     Dosage: DAILY
     Route: 048

REACTIONS (3)
  - Fungal infection [Not Recovered/Not Resolved]
  - Rheumatoid arthritis [Not Recovered/Not Resolved]
  - Incorrect product storage [Recovered/Resolved]
